FAERS Safety Report 8981875 (Version 1)
Quarter: 2012Q4

REPORT INFORMATION
  Report Type: 
  Country: US (occurrence: US)
  Receive Date: 20121212
  Receipt Date: 20121212
  Transmission Date: 20130627
  Serious: Yes (Death)
  Sender: FDA-Public Use
  Company Number: US-ASTELLAS-1117638

PATIENT
  Sex: Male

DRUGS (2)
  1. TARCEVA [Suspect]
     Indication: MALIGNANT RESPIRATORY TRACT NEOPLASM
     Route: 048
     Dates: start: 20041222, end: 20050608
  2. TARCEVA [Suspect]
     Route: 048
     Dates: start: 200506

REACTIONS (3)
  - Non-small cell lung cancer [Fatal]
  - Tachycardia [Unknown]
  - Rash [Unknown]
